FAERS Safety Report 20029781 (Version 1)
Quarter: 2021Q4

REPORT INFORMATION
  Report Type: Spontaneous
  Country: US (occurrence: US)
  Receive Date: 20211103
  Receipt Date: 20211103
  Transmission Date: 20220303
  Serious: Yes (Hospitalization, Other)
  Sender: FDA-Public Use
  Company Number: US-AMGEN-USASP2021168154

PATIENT
  Age: 76 Year
  Sex: Male

DRUGS (2)
  1. IMLYGIC [Suspect]
     Active Substance: TALIMOGENE LAHERPAREPVEC
     Indication: Neuroendocrine carcinoma of the skin
     Dosage: 4 MILLILITER, 10^6 CFU
     Route: 026
     Dates: start: 20211020
  2. IMLYGIC [Suspect]
     Active Substance: TALIMOGENE LAHERPAREPVEC
     Indication: Off label use

REACTIONS (5)
  - Hypoxia [Unknown]
  - Blast cell count increased [Unknown]
  - Tachycardia [Unknown]
  - Pyrexia [Unknown]
  - Off label use [Unknown]

NARRATIVE: CASE EVENT DATE: 20211001
